FAERS Safety Report 8542996-2 (Version None)
Quarter: 2012Q3

REPORT INFORMATION
  Report Type: 
  Country: None (occurrence: None)
  Receive Date: 20120727
  Receipt Date: 20120522
  Transmission Date: 20120928
  Serious: Yes (Other)
  Sender: FDA-Public Use
  Company Number: US-JNJFOC-20120519314

PATIENT

DRUGS (1)
  1. NUCYNTA [Suspect]
     Indication: PAIN
     Route: 048

REACTIONS (1)
  - SEROTONIN SYNDROME [None]
